FAERS Safety Report 6982616-1 (Version None)
Quarter: 2010Q3

REPORT INFORMATION
  Report Type: 
  Country: None (occurrence: None)
  Receive Date: 20100914
  Receipt Date: 20100216
  Transmission Date: 20110219
  Serious: No
  Sender: FDA-Public Use
  Company Number: US-PFIZER INC-2010020644

PATIENT
  Sex: Female
  Weight: 109 kg

DRUGS (2)
  1. LYRICA [Suspect]
     Indication: PAIN
     Dosage: 75 MG, 1X/DAY
     Route: 048
     Dates: start: 20090101, end: 20090101
  2. NEURONTIN [Suspect]
     Indication: PAIN
     Dosage: 300 MG, UNK
     Route: 048

REACTIONS (1)
  - DIZZINESS [None]
